FAERS Safety Report 26151671 (Version 1)
Quarter: 2025Q4

REPORT INFORMATION
  Report Type: Spontaneous
  Country: US (occurrence: US)
  Receive Date: 20251212
  Receipt Date: 20251212
  Transmission Date: 20260119
  Serious: No
  Sender: BIOMARIN
  Company Number: US-BIOMARINAP-US-2025-170519

PATIENT
  Age: 44 Year
  Sex: Male

DRUGS (1)
  1. PALYNZIQ [Suspect]
     Active Substance: PEGVALIASE-PQPZ
     Indication: Product used for unknown indication
     Dosage: UNK

REACTIONS (3)
  - Injection site reaction [Recovered/Resolved]
  - Scar [Recovered/Resolved]
  - Arthralgia [Recovered/Resolved]
